FAERS Safety Report 22271261 (Version 1)
Quarter: 2023Q2

REPORT INFORMATION
  Report Type: Report from Study
  Country: CA (occurrence: CA)
  Receive Date: 20230501
  Receipt Date: 20230501
  Transmission Date: 20230722
  Serious: Yes (Other)
  Sender: FDA-Public Use
  Company Number: CA-BAUSCH-BL-2023-005262

PATIENT
  Age: 75 Year
  Sex: Male

DRUGS (2)
  1. SILIQ [Suspect]
     Active Substance: BRODALUMAB
     Indication: Psoriasis
     Dosage: 210MG/1.5ML INDUCTION WEEKLY, WEEK 0,1,2 (WEEK 1 /MAR/2023, WEEK 2 /APR/2023)
     Route: 058
     Dates: start: 20230324, end: 202304
  2. SILIQ [Suspect]
     Active Substance: BRODALUMAB
     Dosage: 210MG/1.5, Q2 WEEKS
     Route: 058
     Dates: start: 202304

REACTIONS (5)
  - Blood pressure systolic decreased [Unknown]
  - Chromaturia [Recovered/Resolved]
  - Asthenia [Recovering/Resolving]
  - Fatigue [Unknown]
  - Myalgia [Recovering/Resolving]

NARRATIVE: CASE EVENT DATE: 20230324
